FAERS Safety Report 21927692 (Version 1)
Quarter: 2023Q1

REPORT INFORMATION
  Report Type: Spontaneous
  Country: JP (occurrence: JP)
  Receive Date: 20230130
  Receipt Date: 20230130
  Transmission Date: 20230418
  Serious: Yes (Other)
  Sender: FDA-Public Use
  Company Number: JP-PFIZER INC-PV202300016497

PATIENT
  Age: 76 Year
  Sex: Female

DRUGS (7)
  1. PAXLOVID [Suspect]
     Active Substance: NIRMATRELVIR\RITONAVIR
     Indication: COVID-19 treatment
     Dosage: UNK UNK, 2X/DAY
     Route: 048
  2. ATENOLOL [Concomitant]
     Active Substance: ATENOLOL
  3. NIFEDIPINE [Concomitant]
     Active Substance: NIFEDIPINE
  4. ETIZOLAM [Concomitant]
     Active Substance: ETIZOLAM
  5. VALSARTAN [Concomitant]
     Active Substance: VALSARTAN
  6. ATORVASTATIN [Concomitant]
     Active Substance: ATORVASTATIN
  7. BENIDIPINE [Concomitant]
     Active Substance: BENIDIPINE

REACTIONS (2)
  - Bradycardia [Recovering/Resolving]
  - Shock [Recovering/Resolving]

NARRATIVE: CASE EVENT DATE: 20230125
